FAERS Safety Report 12089113 (Version 2)
Quarter: 2016Q2

REPORT INFORMATION
  Report Type: Spontaneous
  Country: BR (occurrence: BR)
  Receive Date: 20160218
  Receipt Date: 20160504
  Transmission Date: 20160815
  Serious: Yes (Other)
  Sender: FDA-Public Use
  Company Number: BR-JNJFOC-20151023804

PATIENT
  Sex: Female

DRUGS (1)
  1. SIMPONI [Suspect]
     Active Substance: GOLIMUMAB
     Indication: RHEUMATOID ARTHRITIS
     Route: 058
     Dates: start: 20150904

REACTIONS (5)
  - Haemorrhoids [Unknown]
  - Arthralgia [Unknown]
  - Haemorrhage [Unknown]
  - Gastrointestinal inflammation [Unknown]
  - Pain in extremity [Unknown]
